FAERS Safety Report 19511051 (Version 1)
Quarter: 2021Q3

REPORT INFORMATION
  Report Type: Spontaneous
  Country: US (occurrence: US)
  Receive Date: 20210709
  Receipt Date: 20210709
  Transmission Date: 20211014
  Serious: No
  Sender: FDA-Public Use
  Company Number: US-JNJFOC-20210664424

PATIENT
  Age: 63 Year
  Sex: Female

DRUGS (1)
  1. TYLENOL 8 HR ARTHRITIS PAIN [Suspect]
     Active Substance: ACETAMINOPHEN
     Indication: ARTHRITIS
     Dosage: 2 EVERY 8 HOURS I USED IT LIKE IT SAID 2 EVERY 8 HOURS, START DATE ? FOR OVER 10 DAYS
     Route: 065
     Dates: start: 202106

REACTIONS (3)
  - Peripheral swelling [Unknown]
  - Blister [Unknown]
  - Product administration error [Unknown]

NARRATIVE: CASE EVENT DATE: 202106
